FAERS Safety Report 11509523 (Version 1)
Quarter: 2015Q3

REPORT INFORMATION
  Report Type: Spontaneous
  Country: US (occurrence: US)
  Receive Date: 20150915
  Receipt Date: 20150915
  Transmission Date: 20151125
  Serious: No
  Sender: FDA-Public Use
  Company Number: US-MARATHON PHARMACEUTICALS-2014MAR00022

PATIENT
  Age: 10 Year
  Sex: Female

DRUGS (19)
  1. ZINGO [Suspect]
     Active Substance: LIDOCAINE HYDROCHLORIDE
     Indication: CATHETER PLACEMENT
     Dosage: UNK
     Route: 042
     Dates: start: 20141117, end: 20141117
  2. METHOTREXATE [Concomitant]
     Active Substance: METHOTREXATE
     Dosage: 17.5 MG, 1X/WEEK
     Route: 058
     Dates: start: 20140612, end: 20140922
  3. FOLIC ACID. [Concomitant]
     Active Substance: FOLIC ACID
     Dosage: 1 MG, 1X/DAY
     Dates: start: 20140410, end: 20140512
  4. SOLU-MEDROL [Concomitant]
     Active Substance: METHYLPREDNISOLONE SODIUM SUCCINATE
     Dosage: UNK, 2X/MONTH
     Dates: start: 20141117
  5. ZINGO [Suspect]
     Active Substance: LIDOCAINE HYDROCHLORIDE
     Dosage: UNK
     Route: 042
     Dates: start: 20141215, end: 20141215
  6. METHYLPREDNISOLONE SODIUM SUCCINATE. [Concomitant]
     Active Substance: METHYLPREDNISOLONE SODIUM SUCCINATE
     Dosage: UNK, 1X/MONTH
     Route: 042
  7. METHOTREXATE [Concomitant]
     Active Substance: METHOTREXATE
     Dosage: 20 MG, 1X/WEEK
     Route: 058
     Dates: start: 20140923
  8. CELLCEPT [Concomitant]
     Active Substance: MYCOPHENOLATE MOFETIL\MYCOPHENOLATE MOFETIL HYDROCHLORIDE
     Dosage: 750 MG, UNK
     Route: 048
     Dates: start: 20140923, end: 201410
  9. FOLIC ACID. [Concomitant]
     Active Substance: FOLIC ACID
     Dosage: 2 MG, 1X/DAY
     Route: 048
     Dates: start: 20140513
  10. PREDNISONE. [Concomitant]
     Active Substance: PREDNISONE
     Dosage: 15 MG, 1X/DAY
  11. VITAMIN D [Concomitant]
     Active Substance: CHOLECALCIFEROL
     Dosage: UNK
     Dates: start: 20140410
  12. CALCIUM [Concomitant]
     Active Substance: CALCIUM
     Dosage: UNK
     Dates: start: 20140410
  13. LEVOLEUCOVORIN CALCIUM [Concomitant]
     Active Substance: LEVOLEUCOVORIN CALCIUM
     Dosage: 5 MG, 1X/WEEK
     Route: 048
     Dates: start: 20140513
  14. SOLU-MEDROL [Concomitant]
     Active Substance: METHYLPREDNISOLONE SODIUM SUCCINATE
     Dosage: UNK
     Dates: start: 20140616, end: 20141117
  15. IVIG [Concomitant]
     Active Substance: HUMAN IMMUNOGLOBULIN G
     Dosage: 40 MG, 1X/MONTH
     Route: 042
     Dates: start: 20140728
  16. CALCIUM-CARB-CHOLECALCIFEROL [Concomitant]
     Dosage: 1 TABLETS, 1X/DAY
     Route: 048
  17. CELLCEPT [Concomitant]
     Active Substance: MYCOPHENOLATE MOFETIL\MYCOPHENOLATE MOFETIL HYDROCHLORIDE
     Dosage: 1000 UNK, UNK
     Route: 048
     Dates: start: 201410
  18. PLAQUENIL [Concomitant]
     Active Substance: HYDROXYCHLOROQUINE SULFATE
     Dosage: 200 MG, 1X/DAY
     Route: 048
     Dates: start: 20140410
  19. ZYRTEC [Concomitant]
     Active Substance: CETIRIZINE HYDROCHLORIDE
     Dosage: 10 MG, 1X/DAY
     Route: 048

REACTIONS (3)
  - Injection site erythema [Unknown]
  - Drug ineffective [Unknown]
  - Injection site haemorrhage [Unknown]

NARRATIVE: CASE EVENT DATE: 20141117
